FAERS Safety Report 9375406 (Version 1)
Quarter: 2013Q2

REPORT INFORMATION
  Report Type: Spontaneous
  Country: SI (occurrence: SI)
  Receive Date: 20130628
  Receipt Date: 20130628
  Transmission Date: 20140414
  Serious: Yes (Other)
  Sender: FDA-Public Use
  Company Number: SI-TEVA-414598ISR

PATIENT
  Age: 59 Year
  Sex: Male

DRUGS (7)
  1. EPOSIN 20 MG/ML [Suspect]
     Indication: SMALL CELL LUNG CANCER
     Dosage: CONCENTRATE FOR SOLUTION FOR INFUSION
     Route: 042
     Dates: start: 20130523, end: 20130523
  2. LASIX [Concomitant]
  3. ZALDIAR [Concomitant]
     Dosage: 3X1 TBL.
  4. LEXAURIN 1,5 [Concomitant]
  5. MEDROL [Concomitant]
  6. EMOZUL [Concomitant]
  7. FRAGMIN [Concomitant]

REACTIONS (5)
  - Infusion related reaction [Recovered/Resolved]
  - Hypoxia [Recovered/Resolved]
  - Chest pain [Recovered/Resolved]
  - Dyspnoea [Recovered/Resolved]
  - Hyperhidrosis [Recovered/Resolved]
